FAERS Safety Report 4763243-3 (Version None)
Quarter: 2005Q3

REPORT INFORMATION
  Report Type: 
  Country: None (occurrence: None)
  Receive Date: 20050902
  Receipt Date: 20050822
  Transmission Date: 20060218
  Serious: Yes (Death, Life-Threatening)
  Sender: FDA-Public Use
  Company Number: 27306

PATIENT
  Age: 77 Year
  Sex: Female

DRUGS (6)
  1. FLECAINIDE ACETATE [Suspect]
     Dosage: 100 MG ORAL
     Route: 048
  2. URISPAS [Suspect]
     Dosage: 400 MG ORAL
     Route: 048
  3. POTASSIUM CHLORIDE [Suspect]
     Dosage: 600 MG ORAL
     Route: 048
  4. NEXIUM [Suspect]
     Dosage: 20 MG ORAL
     Route: 048
  5. MICARDIS [Suspect]
     Dosage: 80 MG ORAL
     Route: 048
  6. PHYSIOTENS (MOXONIDINE) [Suspect]
     Dosage: 0.4 MG ORAL
     Route: 048

REACTIONS (7)
  - ABDOMINAL PAIN [None]
  - ANOREXIA [None]
  - ASTHENIA [None]
  - HEPATIC FAILURE [None]
  - PORTAL HYPERTENSION [None]
  - RENAL FAILURE [None]
  - UPPER GASTROINTESTINAL HAEMORRHAGE [None]
